FAERS Safety Report 6244366-9 (Version None)
Quarter: 2009Q2

REPORT INFORMATION
  Report Type: 
  Country: None (occurrence: None)
  Receive Date: 20090625
  Receipt Date: 20090615
  Transmission Date: 20091009
  Serious: Yes (Other)
  Sender: FDA-Public Use
  Company Number: PHHY2009BR24211

PATIENT
  Sex: Female
  Weight: 40 kg

DRUGS (3)
  1. TRILEPTAL [Suspect]
     Indication: EPILEPSY
     Dosage: 7.5 ML, Q12H
     Route: 048
     Dates: start: 20081001
  2. TRILEPTAL [Suspect]
     Dosage: 7.5 ML, Q12H
     Route: 048
     Dates: start: 20090501
  3. TRILEPTAL [Suspect]
     Dosage: 1.5 DF, Q12H
     Route: 048
     Dates: start: 20081201, end: 20090501

REACTIONS (2)
  - EDUCATIONAL PROBLEM [None]
  - MEMORY IMPAIRMENT [None]
